FAERS Safety Report 4474182-X (Version None)
Quarter: 2004Q4

REPORT INFORMATION
  Report Type: 
  Country: None (occurrence: None)
  Receive Date: 20041008
  Receipt Date: 20030612
  Transmission Date: 20050328
  Serious: Yes (Hospitalization)
  Sender: FDA-Public Use
  Company Number: PW/030612/920

PATIENT
  Age: 24 Year
  Sex: Male

DRUGS (4)
  1. BUPRENORPHINE HCL [Suspect]
     Indication: DRUG DEPENDENCE
     Dosage: 4 MG QD     IA
  2. CYAMEMAZINE [Concomitant]
  3. CLORAZEPATE DIPOTASSIUM [Concomitant]
  4. CLOMIPRAMINE HCL [Concomitant]

REACTIONS (8)
  - ARTERIAL INJURY [None]
  - EXTREMITY NECROSIS [None]
  - FINGER AMPUTATION [None]
  - INTENTIONAL MISUSE [None]
  - PARAESTHESIA [None]
  - PERIPHERAL COLDNESS [None]
  - PERIPHERAL ISCHAEMIA [None]
  - THROMBOSIS [None]
